FAERS Safety Report 8927825 (Version 1)
Quarter: 2012Q4

REPORT INFORMATION
  Report Type: 
  Country: DK (occurrence: GB)
  Receive Date: 20121127
  Receipt Date: 20121127
  Transmission Date: 20130627
  Serious: Yes (Other)
  Sender: FDA-Public Use
  Company Number: GB-FRI-1000040608

PATIENT
  Age: 46 Year
  Sex: Male

DRUGS (3)
  1. CITALOPRAM [Suspect]
     Indication: DEPRESSION
     Dosage: 10 mg daily
     Route: 048
     Dates: end: 201112
  2. CITALOPRAM [Suspect]
     Dosage: 20 mg
     Route: 048
     Dates: start: 201112
  3. ZOPICLONE [Suspect]
     Dosage: 7.5 mg
     Dates: start: 201210

REACTIONS (2)
  - Mania [Unknown]
  - Unevaluable event [Unknown]
